FAERS Safety Report 8457981-9 (Version None)
Quarter: 2012Q2

REPORT INFORMATION
  Report Type: 
  Country: None (occurrence: None)
  Receive Date: 20120622
  Receipt Date: 20120612
  Transmission Date: 20120825
  Serious: Yes (Hospitalization)
  Sender: FDA-Public Use
  Company Number: BE-JNJFOC-20120606297

PATIENT
  Sex: Male
  Weight: 28.6 kg

DRUGS (2)
  1. REMICADE [Suspect]
     Indication: CROHN'S DISEASE
     Route: 042
     Dates: start: 20060718
  2. AZATHIOPRINE [Concomitant]

REACTIONS (1)
  - ABDOMINAL ABSCESS [None]
